FAERS Safety Report 16966524 (Version 3)
Quarter: 2019Q4

REPORT INFORMATION
  Report Type: Spontaneous
  Country: RU (occurrence: RU)
  Receive Date: 20191028
  Receipt Date: 20191226
  Transmission Date: 20200122
  Serious: Yes (Hospitalization, Other)
  Sender: FDA-Public Use
  Company Number: NVSC2019RU016283

PATIENT
  Age: 26 Year
  Sex: Male

DRUGS (1)
  1. DEXAMETHASONE. [Suspect]
     Active Substance: DEXAMETHASONE
     Indication: CONJUNCTIVITIS
     Dosage: UNK
     Route: 065

REACTIONS (4)
  - Product administration error [Unknown]
  - Open angle glaucoma [Recovering/Resolving]
  - Blepharitis [Recovered/Resolved]
  - Cataract [Unknown]
